FAERS Safety Report 12723490 (Version 4)
Quarter: 2017Q1

REPORT INFORMATION
  Report Type: Spontaneous
  Country: US (occurrence: US)
  Receive Date: 20160908
  Receipt Date: 20170125
  Transmission Date: 20170428
  Serious: Yes (Death, Hospitalization)
  Sender: FDA-Public Use
  Company Number: US-PFIZER INC-2016336346

PATIENT
  Age: 67 Year
  Sex: Male
  Weight: 120 kg

DRUGS (23)
  1. FUROSEMIDE. [Concomitant]
     Active Substance: FUROSEMIDE
     Indication: DIURETIC THERAPY
     Dosage: 20 MG, DAILY
     Dates: start: 20121016
  2. TRICOR [Concomitant]
     Active Substance: FENOFIBRATE
     Indication: BLOOD TRIGLYCERIDES
  3. COREG [Concomitant]
     Active Substance: CARVEDILOL
     Indication: HYPERTENSION
  4. METFORMIN [Concomitant]
     Active Substance: METFORMIN HYDROCHLORIDE
     Indication: DIABETES MELLITUS
     Dosage: 1000 MG, 2X/DAY (TWO 500MG TWICE DAILY)
     Dates: start: 20131010
  5. LANTUS [Concomitant]
     Active Substance: INSULIN GLARGINE
     Indication: DIABETES MELLITUS
     Dosage: 100 UNK, UNK
     Route: 058
  6. PLAVIX [Concomitant]
     Active Substance: CLOPIDOGREL BISULFATE
     Indication: COAGULATION TIME SHORTENED
     Dosage: 75 MG, DAILY
     Dates: start: 20121016
  7. IBRANCE [Suspect]
     Active Substance: PALBOCICLIB
     Indication: BREAST CANCER
     Dosage: 125 MG, CYCLIC (QD 21 DAYS ON 7 DAYS OFF 28 DAY CYCLE)
     Route: 048
  8. LETROZOLE. [Concomitant]
     Active Substance: LETROZOLE
     Indication: BREAST CANCER
     Dosage: 2.5 MG, DAILY
     Dates: start: 201607
  9. LANTUS [Concomitant]
     Active Substance: INSULIN GLARGINE
     Dosage: 30 IU, DAILY
     Route: 058
     Dates: start: 20130620
  10. SIMVASTATIN. [Concomitant]
     Active Substance: SIMVASTATIN
     Indication: BLOOD CHOLESTEROL
     Dosage: 5 MG, DAILY
     Dates: start: 20121016
  11. IBRANCE [Suspect]
     Active Substance: PALBOCICLIB
     Dosage: 125 MG, CYCLIC (FOR 21 DAYS, THEN OFF FOR 7 DAYS)
     Route: 048
     Dates: start: 201607
  12. ASPIRIN. [Concomitant]
     Active Substance: ASPIRIN
     Dosage: 325 MG, DAILY
     Dates: start: 20130103
  13. GLIMEPIRIDE. [Concomitant]
     Active Substance: GLIMEPIRIDE
     Indication: DIABETES MELLITUS
     Dosage: 4 MG, 2X/DAY
     Dates: start: 20121016
  14. QUINAPRIL. [Concomitant]
     Active Substance: QUINAPRIL
     Indication: HYPERTENSION
     Dosage: 10 MG, DAILY
     Dates: start: 20121016
  15. SERTRALINE [Concomitant]
     Active Substance: SERTRALINE HYDROCHLORIDE
     Indication: DEPRESSION
     Dosage: 100 MG, DAILY
     Dates: start: 20131010
  16. COLACE [Concomitant]
     Active Substance: DOCUSATE SODIUM
     Indication: ABNORMAL FAECES
     Dosage: 100 MG, 2X/DAY
     Dates: start: 20121016
  17. TRICOR [Concomitant]
     Active Substance: FENOFIBRATE
     Indication: BLOOD CHOLESTEROL DECREASED
     Dosage: 145 MG, DAILY
     Dates: start: 20121016
  18. VYTORIN [Concomitant]
     Active Substance: EZETIMIBE\SIMVASTATIN
     Indication: BLOOD CHOLESTEROL
     Dosage: UNK UNK, DAILY [EZETIMIBE: 10 MG], [SIMVASTATIN: 20 MG]
     Dates: start: 20121016
  19. IBRANCE [Suspect]
     Active Substance: PALBOCICLIB
     Indication: BRAIN CANCER METASTATIC
     Dosage: 125 MG, CYCLIC (DAILY FOR 21 DAYS THEN OFF FOR 7 DAYS)
     Route: 048
  20. COREG [Concomitant]
     Active Substance: CARVEDILOL
     Indication: CARDIAC FAILURE
     Dosage: 12.5 MG, 2X/DAY
     Dates: start: 20121016
  21. FOLIC ACID. [Concomitant]
     Active Substance: FOLIC ACID
     Indication: SUPPLEMENTATION THERAPY
     Dosage: 1 MG, DAILY
     Dates: start: 20121016
  22. SIMVOTIN [Concomitant]
     Indication: BLOOD CHOLESTEROL
     Dosage: UNK
  23. METOPROLOL. [Concomitant]
     Active Substance: METOPROLOL
     Indication: HYPERTENSION
     Dosage: 25 MG, DAILY
     Dates: start: 20121016

REACTIONS (14)
  - Amnesia [Unknown]
  - Spinal column stenosis [Not Recovered/Not Resolved]
  - Dyspnoea [Unknown]
  - Cough [Unknown]
  - Death [Fatal]
  - Muscular weakness [Not Recovered/Not Resolved]
  - Hypoglycaemia [Unknown]
  - Neuropathy peripheral [Unknown]
  - Fatigue [Unknown]
  - Confusional state [Unknown]
  - Fall [Unknown]
  - Product use issue [Unknown]
  - Hot flush [Unknown]
  - Hallucination [Unknown]

NARRATIVE: CASE EVENT DATE: 201607
